FAERS Safety Report 25714742 (Version 1)
Quarter: 2025Q3

REPORT INFORMATION
  Report Type: Spontaneous
  Country: EU (occurrence: EU)
  Receive Date: 20250822
  Receipt Date: 20250822
  Transmission Date: 20251021
  Serious: Yes (Hospitalization, Other)
  Sender: ABBVIE
  Company Number: EU-ABBVIE-6426131

PATIENT
  Sex: Female

DRUGS (1)
  1. OZURDEX [Suspect]
     Active Substance: DEXAMETHASONE
     Indication: Product used for unknown indication
     Route: 050
     Dates: start: 20230721

REACTIONS (3)
  - Corneal transplant [Unknown]
  - Lens dislocation [Unknown]
  - Intravitreal implant [Unknown]

NARRATIVE: CASE EVENT DATE: 20230721
